FAERS Safety Report 11941079 (Version 1)
Quarter: 2016Q1

REPORT INFORMATION
  Report Type: Spontaneous
  Country: US (occurrence: US)
  Receive Date: 20160122
  Receipt Date: 20160122
  Transmission Date: 20160526
  Serious: Yes (Other)
  Sender: FDA-Public Use
  Company Number: US-AKORN PHARMACEUTICALS-2016AKN00039

PATIENT
  Age: 66 Year
  Sex: Male

DRUGS (11)
  1. TRANEXAMIC ACID. [Suspect]
     Active Substance: TRANEXAMIC ACID
     Dosage: 1 MG/KG/HOUR
     Route: 042
  2. FENTANYL. [Concomitant]
     Active Substance: FENTANYL
  3. TRANEXAMIC ACID. [Suspect]
     Active Substance: TRANEXAMIC ACID
     Dosage: 1 G, ONCE
     Route: 042
  4. ALBUMIN [Concomitant]
     Active Substance: ALBUMIN (HUMAN)
     Dosage: 500 ML, UNK
  5. DESFLURANE. [Concomitant]
     Active Substance: DESFLURANE
  6. HIGHLY ACTIVE ANTIRETROVIRAL THERAPY [Concomitant]
     Active Substance: UNSPECIFIED INGREDIENT
     Indication: HIV INFECTION
  7. PROPOFOL. [Concomitant]
     Active Substance: PROPOFOL
  8. CRYSTALLOID [Concomitant]
     Active Substance: UNSPECIFIED INGREDIENT
     Dosage: 2 L, UNK
  9. MIDAZOLAM [Concomitant]
     Active Substance: MIDAZOLAM\MIDAZOLAM HYDROCHLORIDE
  10. LIDOCAINE. [Concomitant]
     Active Substance: LIDOCAINE
  11. SUFENTANIL [Concomitant]
     Active Substance: SUFENTANIL

REACTIONS (2)
  - Thrombosis [Unknown]
  - Acute myocardial infarction [Unknown]
